FAERS Safety Report 8757827 (Version 1)
Quarter: 2012Q4

REPORT INFORMATION
  Report Type: Report from Study
  Country: CA (occurrence: CA)
  Receive Date: 20120828
  Receipt Date: 20120828
  Transmission Date: 20130627
  Serious: Yes (Life-Threatening)
  Sender: FDA-Public Use
  Company Number: CA-JNJFOC-20120808469

PATIENT
  Age: 56 Year
  Sex: Female
  Weight: 65 kg

DRUGS (15)
  1. REMICADE [Suspect]
     Indication: COLITIS ULCERATIVE
     Route: 042
     Dates: start: 20120628
  2. REMICADE [Suspect]
     Indication: COLITIS ULCERATIVE
     Route: 042
     Dates: start: 20120820
  3. REMICADE [Suspect]
     Indication: COLITIS ULCERATIVE
     Route: 042
     Dates: start: 20110912
  4. SOLU-CORTEF [Suspect]
     Indication: PREMEDICATION
     Route: 065
  5. NEXIUM [Concomitant]
     Route: 065
  6. BENADRYL [Concomitant]
     Indication: PREMEDICATION
     Route: 042
  7. REACTINE [Concomitant]
     Indication: PREMEDICATION
     Route: 048
  8. TYLENOL [Concomitant]
     Indication: PREMEDICATION
     Route: 048
  9. GRAVOL [Concomitant]
     Route: 042
  10. ALPRAZOLAM [Concomitant]
     Route: 065
  11. SYMBICORT [Concomitant]
     Route: 065
  12. VENTOLIN [Concomitant]
     Route: 065
  13. VITAMIN D [Concomitant]
     Route: 065
  14. CALCIUM [Concomitant]
     Route: 065
  15. HYDROMORPH [Concomitant]
     Route: 065

REACTIONS (9)
  - Blood pressure increased [Recovered/Resolved]
  - Heart rate increased [Recovered/Resolved]
  - Palpitations [Recovered/Resolved]
  - Infusion related reaction [Recovered/Resolved]
  - Pain in extremity [Recovering/Resolving]
  - Oedema peripheral [Recovering/Resolving]
  - Pruritus [Recovered/Resolved]
  - Urticaria [Recovered/Resolved]
  - Nausea [Recovered/Resolved]
